FAERS Safety Report 6416803-8 (Version None)
Quarter: 2009Q4

REPORT INFORMATION
  Report Type: 
  Country: None (occurrence: None)
  Receive Date: 20091022
  Receipt Date: 20091012
  Transmission Date: 20100525
  Serious: Yes (Hospitalization)
  Sender: FDA-Public Use
  Company Number: 2009AC000206

PATIENT
  Age: 65 Year
  Sex: Male

DRUGS (2)
  1. DIGOXIN [Suspect]
     Dosage: 0.125 MG; PO
     Route: 048
     Dates: start: 20080918
  2. I INSULIN [Concomitant]

REACTIONS (8)
  - ANHEDONIA [None]
  - ANXIETY [None]
  - ECONOMIC PROBLEM [None]
  - HEART INJURY [None]
  - HEART TRANSPLANT [None]
  - INJURY [None]
  - MULTIPLE INJURIES [None]
  - PAIN [None]
